FAERS Safety Report 9906549 (Version 1)
Quarter: 2014Q1

REPORT INFORMATION
  Report Type: Spontaneous
  Country: US (occurrence: US)
  Receive Date: 20140218
  Receipt Date: 20140218
  Transmission Date: 20141002
  Serious: Yes (Hospitalization)
  Sender: FDA-Public Use
  Company Number: 2014SP000445

PATIENT
  Sex: Female

DRUGS (2)
  1. LATUDA [Suspect]
     Indication: SCHIZOPHRENIA
     Route: 048
  2. RISPERDAL [Concomitant]

REACTIONS (1)
  - Muscle twitching [Unknown]
